FAERS Safety Report 15905967 (Version 1)
Quarter: 2019Q1

REPORT INFORMATION
  Report Type: Spontaneous
  Country: JP (occurrence: JP)
  Receive Date: 20190204
  Receipt Date: 20190204
  Transmission Date: 20190417
  Serious: Yes (Other)
  Sender: FDA-Public Use
  Company Number: JP-PFIZER INC-2019042289

PATIENT
  Sex: Female

DRUGS (1)
  1. LYRICA [Suspect]
     Active Substance: PREGABALIN
     Dosage: UNK

REACTIONS (10)
  - Fall [Unknown]
  - Musculoskeletal pain [Unknown]
  - Dizziness [Unknown]
  - Traumatic haemorrhage [Unknown]
  - Neck pain [Unknown]
  - Hypoaesthesia [Unknown]
  - Nausea [Unknown]
  - Dysstasia [Unknown]
  - Cold sweat [Unknown]
  - Presyncope [Unknown]
